FAERS Safety Report 5934677-6 (Version None)
Quarter: 2008Q4

REPORT INFORMATION
  Report Type: 
  Country: None (occurrence: None)
  Receive Date: 20081029
  Receipt Date: 20081021
  Transmission Date: 20090506
  Serious: Yes (Life-Threatening)
  Sender: FDA-Public Use
  Company Number: US-BAYER-200834809NA

PATIENT
  Age: 56 Year
  Sex: Female

DRUGS (6)
  1. MAGNEVIST [Suspect]
     Indication: NUCLEAR MAGNETIC RESONANCE IMAGING BRAIN
     Dosage: TOTAL DAILY DOSE: 20 ML  UNIT DOSE: 50 ML
     Dates: start: 20081001, end: 20081001
  2. ADVAIR DISKUS 100/50 [Concomitant]
  3. BUSPAR [Concomitant]
  4. PAMELOR [Concomitant]
  5. CINGULAIR [Concomitant]
  6. ALBUTEROL [Concomitant]

REACTIONS (3)
  - CHOKING SENSATION [None]
  - DYSPNOEA [None]
  - HYPERSENSITIVITY [None]
